FAERS Safety Report 4629288-9 (Version None)
Quarter: 2005Q2

REPORT INFORMATION
  Report Type: 
  Country: None (occurrence: None)
  Receive Date: 20050405
  Receipt Date: 20050325
  Transmission Date: 20051028
  Serious: Yes (Hospitalization, Other)
  Sender: FDA-Public Use
  Company Number: HD-ADVR-20050202

PATIENT
  Age: 64 Year
  Sex: Male

DRUGS (1)
  1. TRI-LUMA [Suspect]
     Indication: SKIN DISCOLOURATION
     Dosage: BID, TOPICAL
     Route: 061
     Dates: start: 20041227

REACTIONS (6)
  - DIZZINESS [None]
  - EAR HAEMORRHAGE [None]
  - ERYTHEMA [None]
  - FALL [None]
  - LOSS OF CONSCIOUSNESS [None]
  - SKIN IRRITATION [None]
